FAERS Safety Report 8238181-4 (Version None)
Quarter: 2012Q1

REPORT INFORMATION
  Report Type: 
  Country: None (occurrence: None)
  Receive Date: 20120327
  Receipt Date: 20120316
  Transmission Date: 20120608
  Serious: Yes (Other)
  Sender: FDA-Public Use
  Company Number: IT-TEVA-329247ISR

PATIENT
  Sex: Female

DRUGS (1)
  1. LETROZOLE [Suspect]
     Dosage: 2.5 MILLIGRAM;
     Route: 048
     Dates: start: 20111220, end: 20120113

REACTIONS (1)
  - TOXIC SKIN ERUPTION [None]
